FAERS Safety Report 5854463-5 (Version None)
Quarter: 2008Q3

REPORT INFORMATION
  Report Type: 
  Country: None (occurrence: None)
  Receive Date: 20080822
  Receipt Date: 20080812
  Transmission Date: 20090109
  Serious: Yes (Death, Hospitalization, Other)
  Sender: FDA-Public Use
  Company Number: US-PFIZER INC-2008056556

PATIENT
  Age: 16 Year
  Sex: Male
  Weight: 114 kg

DRUGS (7)
  1. METHYLPREDNISOLONE 16MG TAB [Suspect]
     Dosage: DAILY DOSE:220MG
     Dates: start: 20070928, end: 20071024
  2. METHYLPREDNISOLONE 16MG TAB [Suspect]
     Dosage: DAILY DOSE:1000MG
     Dates: start: 20071012, end: 20071015
  3. METHYLPREDNISOLONE 16MG TAB [Suspect]
     Dosage: DAILY DOSE:220MG
     Dates: start: 20071016, end: 20071024
  4. ETANERCEPT [Suspect]
     Indication: IDIOPATHIC PNEUMONIA SYNDROME
     Dates: start: 20070928, end: 20071019
  5. FOSCARNET SODIUM [Concomitant]
  6. CYCLOSPORINE [Concomitant]
  7. GANCICLOVIR [Concomitant]

REACTIONS (6)
  - ACUTE RESPIRATORY DISTRESS SYNDROME [None]
  - CYTOMEGALOVIRUS INFECTION [None]
  - HYPOXIA [None]
  - INTERSTITIAL LUNG DISEASE [None]
  - MULTI-ORGAN FAILURE [None]
  - RENAL FAILURE [None]
